FAERS Safety Report 19269974 (Version 2)
Quarter: 2021Q2

REPORT INFORMATION
  Report Type: Spontaneous
  Country: FR (occurrence: FR)
  Receive Date: 20210518
  Receipt Date: 20210610
  Transmission Date: 20210717
  Serious: Yes (Hospitalization, Other)
  Sender: FDA-Public Use
  Company Number: NVSC2020FR257141

PATIENT
  Age: 52 Year
  Sex: Male
  Weight: 78 kg

DRUGS (17)
  1. LAMALINE [Concomitant]
     Indication: PRODUCT USED FOR UNKNOWN INDICATION
     Dosage: 1 DF, UNKNOWN(EVENING)
     Route: 065
     Dates: start: 20190111
  2. SANDOSTATINE [Suspect]
     Active Substance: OCTREOTIDE ACETATE
     Dosage: 20 MG, QMO
     Route: 030
     Dates: start: 201001
  3. AGARICUS [Concomitant]
     Indication: PRODUCT USED FOR UNKNOWN INDICATION
     Dosage: 15 DRP, BID
     Route: 065
     Dates: start: 20180926
  4. OKIMUS [Concomitant]
     Active Substance: HAWTHORN LEAF WITH FLOWER\QUININE
     Indication: PRODUCT USED FOR UNKNOWN INDICATION
     Dosage: (MORNING AND EVENING)1 DF, UNKNOWN, (TO ACT ON SPONTANEOUS ACTIVITIES)
     Route: 065
     Dates: start: 20190111
  5. PRORHINEL [Concomitant]
     Indication: PRODUCT USED FOR UNKNOWN INDICATION
     Dosage: UNK, (WASHING OF THE NASAL FOSSAE)
     Route: 065
  6. ZINCUM VALERIANICUM KOMPLEX [Concomitant]
     Indication: PRODUCT USED FOR UNKNOWN INDICATION
     Dosage: 3 IU,  MORNING AND EVENING (3 GRAINS)
     Route: 065
     Dates: start: 20180926
  7. FUSIDINE [Concomitant]
     Active Substance: FUSIDIC ACID
     Indication: PRODUCT USED FOR UNKNOWN INDICATION
     Dosage: UNK
     Route: 065
     Dates: start: 20180926
  8. SANDOSTATINE [Suspect]
     Active Substance: OCTREOTIDE ACETATE
     Dosage: 20 MG
     Route: 030
     Dates: start: 20151012
  9. NEO?MERCAZOLE [Concomitant]
     Active Substance: CARBIMAZOLE
     Indication: BLOOD THYROID STIMULATING HORMONE
     Dosage: UNK
     Route: 065
     Dates: start: 200402, end: 200604
  10. SANDOSTATINE [Suspect]
     Active Substance: OCTREOTIDE ACETATE
     Dosage: 20 MG, QMO
     Route: 030
     Dates: end: 20190909
  11. NEO?MERCAZOLE [Concomitant]
     Active Substance: CARBIMAZOLE
     Dosage: 5 MG, QD, (FROM 1 TO 2 TABLETS)
     Route: 065
     Dates: start: 200607
  12. COFFEA ARABICA [Concomitant]
     Indication: PRODUCT USED FOR UNKNOWN INDICATION
     Dosage: 3 IU, (BEFORE SLEEPING AND IF AWAKING DURING NIGHT) (3 GRAINS)
     Route: 065
     Dates: start: 20180926
  13. EFFERALGAN CODEINE [Concomitant]
     Active Substance: ACETAMINOPHEN\CODEINE PHOSPHATE
     Indication: PRODUCT USED FOR UNKNOWN INDICATION
     Dosage: 1 G, UNKNOWN
     Route: 065
     Dates: start: 20180926
  14. HIDROCORTISON [Concomitant]
     Active Substance: HYDROCORTISONE
     Indication: PRODUCT USED FOR UNKNOWN INDICATION
     Dosage: 2 DF, UNKNOWN(MORNING), (SUPPLEMENTATION OF THE CORTICOTROPIC AXIS UNTIL CONSULTATION WITH HIS ENDOC
     Route: 065
  15. SANDOSTATINE [Suspect]
     Active Substance: OCTREOTIDE ACETATE
     Indication: PITUITARY TUMOUR BENIGN
     Dosage: 1 DF, Q2W
     Route: 065
     Dates: start: 200708, end: 201905
  16. VITAMIN D3 [Concomitant]
     Active Substance: CHOLECALCIFEROL
     Indication: PRODUCT USED FOR UNKNOWN INDICATION
     Dosage: 1 DF, QMO
     Route: 065
     Dates: start: 20180926
  17. HIDROCORTISON [Concomitant]
     Active Substance: HYDROCORTISONE
     Dosage: 10 MG, UNKNOWN(MORNING)
     Route: 048

REACTIONS (15)
  - Restless legs syndrome [Recovering/Resolving]
  - Musculoskeletal pain [Recovering/Resolving]
  - Salivary gland fistula [Recovering/Resolving]
  - Blood creatine phosphokinase abnormal [Recovered/Resolved]
  - Lymphadenitis [Unknown]
  - Hypotonia [Unknown]
  - Impatience [Unknown]
  - Noninfective sialoadenitis [Unknown]
  - Insomnia [Recovering/Resolving]
  - Muscle spasms [Recovering/Resolving]
  - Back pain [Recovering/Resolving]
  - Pain in extremity [Recovering/Resolving]
  - Facial paresis [Unknown]
  - Mental disorder [Unknown]
  - Muscle contractions involuntary [Unknown]

NARRATIVE: CASE EVENT DATE: 20090604
